APPROVED DRUG PRODUCT: SOMATULINE DEPOT
Active Ingredient: LANREOTIDE ACETATE
Strength: EQ 60MG BASE/0.2ML (EQ 60MG BASE/0.2ML)
Dosage Form/Route: SOLUTION;SUBCUTANEOUS
Application: N022074 | Product #001 | TE Code: AB
Applicant: IPSEN PHARMA BIOTECH SAS
Approved: Aug 30, 2007 | RLD: Yes | RS: Yes | Type: RX